FAERS Safety Report 17488333 (Version 1)
Quarter: 2020Q1

REPORT INFORMATION
  Report Type: Spontaneous
  Country: US (occurrence: US)
  Receive Date: 20200302
  Receipt Date: 20200302
  Transmission Date: 20200409
  Serious: Yes (Other)
  Sender: FDA-Public Use
  Company Number: None

PATIENT
  Age: 44 Year
  Sex: Female
  Weight: 76.5 kg

DRUGS (5)
  1. WARFARIN [Suspect]
     Active Substance: WARFARIN
     Indication: ANTICOAGULANT THERAPY
     Dosage: ?          OTHER FREQUENCY:40 - 42.5 MG WEEK;?
     Route: 048
     Dates: start: 20191112, end: 20191217
  2. COUMADIN [Concomitant]
     Active Substance: WARFARIN SODIUM
  3. LEVOTHYROXINE. [Concomitant]
     Active Substance: LEVOTHYROXINE
  4. ASPIRIN. [Concomitant]
     Active Substance: ASPIRIN
  5. FERROUS SULFATE. [Concomitant]
     Active Substance: FERROUS SULFATE

REACTIONS (5)
  - Pruritus [None]
  - Rubber sensitivity [None]
  - Dyspnoea [None]
  - Palpitations [None]
  - Urticaria [None]

NARRATIVE: CASE EVENT DATE: 20191213
